FAERS Safety Report 11360303 (Version 1)
Quarter: 2015Q3

REPORT INFORMATION
  Report Type: Report from Study
  Country: US (occurrence: US)
  Receive Date: 20150810
  Receipt Date: 20150810
  Transmission Date: 20151125
  Serious: Yes (Other)
  Sender: FDA-Public Use
  Company Number: PHEH2014US018732

PATIENT
  Sex: Female

DRUGS (2)
  1. EXTAVIA [Suspect]
     Active Substance: INTERFERON BETA-1B
     Indication: MULTIPLE SCLEROSIS
     Dosage: 0.25 MG, QOD
     Route: 058
     Dates: start: 20140418
  2. BETASERON [Concomitant]
     Active Substance: INTERFERON BETA-1B
     Dosage: UNK UKN, UNK

REACTIONS (3)
  - White blood cell count decreased [Recovering/Resolving]
  - Rash macular [Recovering/Resolving]
  - Injection site erythema [Recovering/Resolving]
